FAERS Safety Report 24096388 (Version 3)
Quarter: 2024Q4

REPORT INFORMATION
  Report Type: Report from Study
  Country: FR (occurrence: FR)
  Receive Date: 20240716
  Receipt Date: 20241107
  Transmission Date: 20250115
  Serious: Yes (Other)
  Sender: RANBAXY
  Company Number: FR-SUN PHARMACEUTICAL INDUSTRIES LTD-2024R1-455596

PATIENT
  Age: 50 Year
  Sex: Female
  Weight: 135 kg

DRUGS (13)
  1. PAZOPANIB [Interacting]
     Active Substance: PAZOPANIB
     Indication: Myxofibrosarcoma
     Dosage: 600 MILLIGRAM, QD
     Route: 065
  2. PAZOPANIB [Interacting]
     Active Substance: PAZOPANIB
     Dosage: 800 MILLIGRAM, QD
     Route: 065
  3. PAZOPANIB [Interacting]
     Active Substance: PAZOPANIB
     Dosage: 1200 MILLIGRAM, DAILY
     Route: 065
  4. METHOTREXATE [Interacting]
     Active Substance: METHOTREXATE
     Indication: Rheumatoid arthritis
     Dosage: UNK
     Route: 048
  5. OMEPRAZOLE [Interacting]
     Active Substance: OMEPRAZOLE
     Indication: Gastrooesophageal reflux disease
     Dosage: UNK
     Route: 065
  6. RAMIPRIL [Interacting]
     Active Substance: RAMIPRIL
     Indication: Hypertension
     Dosage: UNK
     Route: 065
  7. ALTHIAZIDE\SPIRONOLACTONE [Interacting]
     Active Substance: ALTHIAZIDE\SPIRONOLACTONE
     Indication: Hypertension
     Dosage: UNK
     Route: 065
  8. FOLIC ACID [Concomitant]
     Active Substance: FOLIC ACID
     Indication: Vitamin supplementation
     Dosage: UNK
     Route: 065
  9. CHOLECALCIFEROL [Concomitant]
     Active Substance: CHOLECALCIFEROL
     Indication: Vitamin supplementation
     Dosage: UNK
     Route: 065
  10. DESLORATADINE [Concomitant]
     Active Substance: DESLORATADINE
     Indication: Product used for unknown indication
     Dosage: UNK
     Route: 065
  11. LEVOTHYROXINE [Concomitant]
     Active Substance: LEVOTHYROXINE
     Indication: Hypothyroidism
     Dosage: UNK
     Route: 065
  12. PROPRANOLOL [Concomitant]
     Active Substance: PROPRANOLOL HYDROCHLORIDE
     Indication: Hypertension
     Dosage: UNK
     Route: 065
  13. TINZAPARIN [Concomitant]
     Active Substance: TINZAPARIN
     Indication: Product used for unknown indication
     Dosage: UNK
     Route: 065

REACTIONS (9)
  - Therapeutic response decreased [Unknown]
  - Drug interaction [Unknown]
  - Diarrhoea [Unknown]
  - Drug ineffective [Unknown]
  - Melaena [Unknown]
  - Drug level below therapeutic [Unknown]
  - Nausea [Unknown]
  - Haematotoxicity [Unknown]
  - Abdominal pain upper [Unknown]
